FAERS Safety Report 5764521-1 (Version None)
Quarter: 2008Q2

REPORT INFORMATION
  Report Type: 
  Country: None (occurrence: None)
  Receive Date: 20080610
  Receipt Date: 20080529
  Transmission Date: 20081010
  Serious: Yes (Other)
  Sender: FDA-Public Use
  Company Number: US-PFIZER INC-2008033786

PATIENT
  Sex: Female
  Weight: 77.1 kg

DRUGS (2)
  1. DEPO-PROVERA SUSPENSION/INJ [Suspect]
     Route: 030
     Dates: start: 20071018, end: 20071018
  2. DEPO-PROVERA SUSPENSION/INJ [Suspect]
     Route: 030
     Dates: start: 20080116, end: 20080116

REACTIONS (3)
  - CHEST PAIN [None]
  - FIBRIN D DIMER INCREASED [None]
  - HEPATIC STEATOSIS [None]
